FAERS Safety Report 14637534 (Version 1)
Quarter: 2018Q1

REPORT INFORMATION
  Report Type: Spontaneous
  Country: AR (occurrence: AR)
  Receive Date: 20180314
  Receipt Date: 20180314
  Transmission Date: 20180509
  Serious: Yes (Hospitalization)
  Sender: FDA-Public Use
  Company Number: AR-PFIZER INC-2018078166

PATIENT
  Age: 46 Year
  Sex: Female

DRUGS (4)
  1. BETAMETAZONA FITERMAN [Concomitant]
     Dosage: UNK
  2. XELJANZ [Suspect]
     Active Substance: TOFACITINIB CITRATE
     Indication: RHEUMATOID ARTHRITIS
     Dosage: 5 MG, TWICE A DAY
     Dates: start: 20170119, end: 201801
  3. LORATADINA [Concomitant]
     Active Substance: LORATADINE
     Dosage: UNK
  4. NAPROX /00256201/ [Concomitant]
     Dosage: UNK

REACTIONS (6)
  - Urticaria [Not Recovered/Not Resolved]
  - Anxiety [Unknown]
  - Condition aggravated [Not Recovered/Not Resolved]
  - Mouth swelling [Unknown]
  - Swelling face [Unknown]
  - Eye swelling [Unknown]

NARRATIVE: CASE EVENT DATE: 2017
